FAERS Safety Report 17237317 (Version 4)
Quarter: 2020Q1

REPORT INFORMATION
  Report Type: Spontaneous
  Country: US (occurrence: US)
  Receive Date: 20200106
  Receipt Date: 20200305
  Transmission Date: 20200409
  Serious: No
  Sender: FDA-Public Use
  Company Number: US-PFIZER INC-2020003125

PATIENT
  Age: 101 Year
  Sex: Female
  Weight: 62.59 kg

DRUGS (2)
  1. FLECTOR [Suspect]
     Active Substance: DICLOFENAC EPOLAMINE
     Indication: ARTHRALGIA
     Dosage: 1 DF, 2X/DAY (1 PATCH EVERY 12 HOURS)
     Route: 062
  2. FLECTOR [Suspect]
     Active Substance: DICLOFENAC EPOLAMINE
     Indication: OSTEOARTHRITIS
     Dosage: UNK UNK, 1X/DAY (90 DAYS SUPPLY- 1 X PER DAY)
     Route: 062

REACTIONS (3)
  - Myalgia [Unknown]
  - Muscular weakness [Unknown]
  - Hypoacusis [Unknown]
